FAERS Safety Report 15216247 (Version 1)
Quarter: 2018Q3

REPORT INFORMATION
  Report Type: Spontaneous
  Country: US (occurrence: US)
  Receive Date: 20180704
  Receipt Date: 20180704
  Transmission Date: 20181010
  Serious: Yes (Hospitalization)
  Sender: FDA-Public Use
  Company Number: None

PATIENT
  Age: 72 Year
  Sex: Female
  Weight: 58 kg

DRUGS (1)
  1. TYMLOS [Suspect]
     Active Substance: ABALOPARATIDE
     Indication: OSTEOPOROSIS
     Route: 058
     Dates: start: 20180703, end: 20180703

REACTIONS (5)
  - Feeling abnormal [None]
  - Pain [None]
  - Bone pain [None]
  - Urinary retention [None]
  - Muscle spasms [None]

NARRATIVE: CASE EVENT DATE: 20180703
